FAERS Safety Report 9369702 (Version 1)
Quarter: 2013Q2

REPORT INFORMATION
  Report Type: Spontaneous
  Country: US (occurrence: US)
  Receive Date: 20130626
  Receipt Date: 20130626
  Transmission Date: 20140414
  Serious: No
  Sender: FDA-Public Use
  Company Number: US-MYLANLABS-2012S1012146

PATIENT
  Age: 63 Year
  Sex: Female

DRUGS (8)
  1. OMEPRAZOLE DELAYED-RELEASE CAPSULES, USP [Suspect]
     Indication: GASTROOESOPHAGEAL REFLUX DISEASE
     Route: 048
     Dates: start: 20120322
  2. LIPITOR [Concomitant]
     Route: 048
  3. AMLODIPINE [Concomitant]
     Route: 048
  4. VITAMINS [Concomitant]
     Route: 048
  5. GLUCOSAMINE + CHONDROITIN WITH MSM /05199601/ [Concomitant]
     Dosage: TRIPLE STRENGTH
     Route: 048
  6. VIT D3 [Concomitant]
     Route: 048
  7. FISH OIL [Concomitant]
     Route: 048
  8. CALCIUM + VITAMIN D /01483701/ [Concomitant]

REACTIONS (2)
  - Blood parathyroid hormone increased [Recovered/Resolved]
  - Glomerular filtration rate decreased [Recovered/Resolved]
